FAERS Safety Report 24257630 (Version 3)
Quarter: 2024Q4

REPORT INFORMATION
  Report Type: Spontaneous
  Country: FR (occurrence: FR)
  Receive Date: 20240828
  Receipt Date: 20241115
  Transmission Date: 20250115
  Serious: Yes (Hospitalization, Other)
  Sender: AUROBINDO
  Company Number: FR-TEVA-2020-FR-1839504

PATIENT
  Age: 51 Year
  Sex: Female

DRUGS (19)
  1. PREDNISONE [Suspect]
     Active Substance: PREDNISONE
     Indication: Psoriasis
     Dosage: 520 MILLIGRAM, ONCE A DAY
     Route: 065
  2. PREDNISONE [Suspect]
     Active Substance: PREDNISONE
     Indication: Psoriatic arthropathy
     Dosage: 1 DOSAGE FORM, ONCE A DAY  (5-20 MG)
     Route: 065
  3. ADALIMUMAB [Suspect]
     Active Substance: ADALIMUMAB
     Indication: Psoriasis
     Dosage: UNK
     Route: 065
  4. ADALIMUMAB [Suspect]
     Active Substance: ADALIMUMAB
     Indication: Psoriatic arthropathy
  5. CYCLOSPORINE [Suspect]
     Active Substance: CYCLOSPORINE
     Indication: Psoriasis
     Dosage: UNK
     Route: 065
  6. CYCLOSPORINE [Suspect]
     Active Substance: CYCLOSPORINE
     Indication: Psoriatic arthropathy
  7. ETANERCEPT [Suspect]
     Active Substance: ETANERCEPT
     Indication: Psoriasis
     Dosage: UNK
     Route: 065
  8. ETANERCEPT [Suspect]
     Active Substance: ETANERCEPT
     Indication: Psoriatic arthropathy
  9. IXEKIZUMAB [Suspect]
     Active Substance: IXEKIZUMAB
     Indication: Psoriasis
     Dosage: 160 MILLIGRAM
     Route: 065
  10. IXEKIZUMAB [Suspect]
     Active Substance: IXEKIZUMAB
     Indication: Psoriatic arthropathy
     Dosage: 80 MILLIGRAM
     Route: 058
     Dates: start: 201803
  11. LEFLUNOMIDE [Suspect]
     Active Substance: LEFLUNOMIDE
     Indication: Psoriatic arthropathy
     Dosage: UNK
     Route: 065
  12. LEFLUNOMIDE [Suspect]
     Active Substance: LEFLUNOMIDE
     Indication: Psoriasis
  13. METHOTREXATE [Suspect]
     Active Substance: METHOTREXATE
     Indication: Psoriasis
     Dosage: UNK
     Route: 065
  14. METHOTREXATE [Suspect]
     Active Substance: METHOTREXATE
     Indication: Psoriatic arthropathy
  15. SECUKINUMAB [Suspect]
     Active Substance: SECUKINUMAB
     Indication: Psoriasis
     Dosage: UNK
     Route: 065
     Dates: start: 201609
  16. SECUKINUMAB [Suspect]
     Active Substance: SECUKINUMAB
     Indication: Psoriatic arthropathy
  17. USTEKINUMAB [Suspect]
     Active Substance: USTEKINUMAB
     Indication: Psoriasis
     Dosage: UNK
     Route: 065
  18. USTEKINUMAB [Suspect]
     Active Substance: USTEKINUMAB
     Indication: Psoriatic arthropathy
  19. SUMATRIPTAN [Concomitant]
     Active Substance: SUMATRIPTAN
     Indication: Evidence based treatment
     Dosage: UNK
     Route: 065

REACTIONS (13)
  - Varicella zoster virus infection [Recovered/Resolved]
  - Facial paralysis [Recovering/Resolving]
  - Cerebral venous thrombosis [Recovered/Resolved]
  - Deafness [Recovering/Resolving]
  - Meningoradiculitis [Recovered/Resolved]
  - Infection reactivation [Recovered/Resolved]
  - Headache [Recovered/Resolved]
  - Therapy non-responder [Unknown]
  - Treatment failure [Unknown]
  - Psoriatic arthropathy [Unknown]
  - IVth nerve paralysis [Recovered/Resolved]
  - Psoriasis [Unknown]
  - Drug ineffective [Unknown]
